FAERS Safety Report 9914168 (Version 1)
Quarter: 2014Q1

REPORT INFORMATION
  Report Type: Spontaneous
  Country: FR (occurrence: FR)
  Receive Date: 20140220
  Receipt Date: 20140220
  Transmission Date: 20141002
  Serious: Yes (Death)
  Sender: FDA-Public Use
  Company Number: FR-JNJFOC-20140210426

PATIENT
  Age: 83 Year
  Sex: Female

DRUGS (8)
  1. XARELTO [Suspect]
     Indication: CEREBROVASCULAR ACCIDENT PROPHYLAXIS
     Route: 048
     Dates: start: 201401
  2. DUROGESIC [Concomitant]
     Route: 065
  3. KARDEGIC [Concomitant]
     Route: 065
  4. KALEORID [Concomitant]
     Route: 065
  5. LASILIX [Concomitant]
     Route: 065
  6. EUPRESSYL [Concomitant]
     Route: 065
  7. CARVEDILOL [Concomitant]
     Route: 065
  8. HEMIGOXINE [Concomitant]
     Route: 065

REACTIONS (2)
  - Ischaemic stroke [Fatal]
  - Drug ineffective [Fatal]
